FAERS Safety Report 15619762 (Version 1)
Quarter: 2018Q4

REPORT INFORMATION
  Report Type: Spontaneous
  Country: US (occurrence: US)
  Receive Date: 20181115
  Receipt Date: 20181115
  Transmission Date: 20190205
  Serious: Yes (Other)
  Sender: FDA-Public Use
  Company Number: US-ASTELLAS-2018US048528

PATIENT
  Sex: Male

DRUGS (1)
  1. XTANDI [Suspect]
     Active Substance: ENZALUTAMIDE
     Indication: PROSTATE CANCER
     Route: 048
     Dates: start: 20180103

REACTIONS (5)
  - Malignant neoplasm progression [Unknown]
  - Fatigue [Unknown]
  - Underdose [Unknown]
  - Arthralgia [Unknown]
  - Dizziness [Unknown]
